FAERS Safety Report 22109333 (Version 2)
Quarter: 2023Q1

REPORT INFORMATION
  Report Type: Spontaneous
  Country: US (occurrence: US)
  Receive Date: 20230317
  Receipt Date: 20230330
  Transmission Date: 20230418
  Serious: No
  Sender: FDA-Public Use
  Company Number: US-LUPIN PHARMACEUTICALS INC.-2023-02070

PATIENT
  Sex: Female
  Weight: 63.946 kg

DRUGS (6)
  1. MISOPROSTOL [Suspect]
     Active Substance: MISOPROSTOL
     Indication: Abortion induced
     Dosage: UNK (FIRST PILL)
     Route: 065
     Dates: start: 20230118, end: 20230118
  2. MISOPROSTOL [Suspect]
     Active Substance: MISOPROSTOL
     Dosage: UNK (SECOND PILL)
     Route: 065
     Dates: start: 20230126, end: 20230126
  3. MISOPROSTOL [Suspect]
     Active Substance: MISOPROSTOL
     Dosage: UNK, TAKE 26 HOURS LATER AS INSTRUCTED BY MEDICATION GUIDE
     Route: 065
  4. MIFEPREX [Suspect]
     Active Substance: MIFEPRISTONE
     Indication: Abortion induced
     Dosage: UNK (FIRST PILL)
     Route: 065
     Dates: start: 20230118, end: 20230118
  5. MIFEPREX [Suspect]
     Active Substance: MIFEPRISTONE
     Dosage: UNK (SECOND PILL)
     Route: 065
     Dates: start: 20230126, end: 20230126
  6. MIFEPREX [Suspect]
     Active Substance: MIFEPRISTONE
     Dosage: UNK, SWALLOW WITH WATER
     Route: 065

REACTIONS (4)
  - Exposure during pregnancy [Unknown]
  - Off label use [Unknown]
  - Extra dose administered [Unknown]
  - Drug ineffective for unapproved indication [Unknown]
